FAERS Safety Report 7042872-0 (Version None)
Quarter: 2010Q4

REPORT INFORMATION
  Report Type: 
  Country: None (occurrence: None)
  Receive Date: 20101013
  Receipt Date: 20100611
  Transmission Date: 20110411
  Serious: No
  Sender: FDA-Public Use
  Company Number: US-ASTRAZENECA-2010SE22040

PATIENT
  Age: 937 Month
  Sex: Male
  Weight: 68 kg

DRUGS (4)
  1. SYMBICORT [Suspect]
     Indication: ASTHMA
     Dosage: 80/4.5 UG 1 PUFF BID
     Route: 055
     Dates: start: 20071105
  2. SYMBICORT [Suspect]
     Indication: CHRONIC OBSTRUCTIVE PULMONARY DISEASE
     Dosage: 80/4.5 UG 1 PUFF BID
     Route: 055
     Dates: start: 20071105
  3. PRILOSEC [Concomitant]
     Route: 048
  4. ALBUTEROL [Concomitant]

REACTIONS (2)
  - DYSPNOEA EXERTIONAL [None]
  - FATIGUE [None]
